FAERS Safety Report 5598545-4 (Version None)
Quarter: 2007Q4

REPORT INFORMATION
  Report Type: 
  Country: None (occurrence: None)
  Receive Date: 20071226
  Receipt Date: 20071103
  Transmission Date: 20080405
  Serious: No
  Sender: FDA-Public Use
  Company Number: 2007PV031498

PATIENT
  Age: 47 Year
  Sex: Female
  Weight: 64.4108 kg

DRUGS (7)
  1. SYMLIN [Suspect]
     Indication: TYPE 1 DIABETES MELLITUS
     Dosage: 60 MCG, SC
     Route: 058
     Dates: start: 20060212, end: 20060401
  2. SYMLIN [Suspect]
     Indication: WEIGHT DECREASED
     Dosage: 60 MCG, SC
     Route: 058
     Dates: start: 20060212, end: 20060401
  3. SYMLIN [Suspect]
     Indication: TYPE 1 DIABETES MELLITUS
     Dosage: 60 MCG, SC
     Route: 058
     Dates: start: 20060101
  4. SYMLIN [Suspect]
     Indication: WEIGHT DECREASED
     Dosage: 60 MCG, SC
     Route: 058
     Dates: start: 20060101
  5. SYMLIN [Suspect]
     Indication: TYPE 1 DIABETES MELLITUS
     Dosage: 60 MCG, SC
     Route: 058
     Dates: start: 20070303
  6. SYMLIN [Suspect]
     Indication: WEIGHT DECREASED
     Dosage: 60 MCG, SC
     Route: 058
     Dates: start: 20070303
  7. HUMALOG [Concomitant]

REACTIONS (3)
  - ABDOMINAL DISTENSION [None]
  - BLOOD GLUCOSE DECREASED [None]
  - BLOOD GLUCOSE FLUCTUATION [None]
